FAERS Safety Report 6240533-9 (Version None)
Quarter: 2009Q2

REPORT INFORMATION
  Report Type: 
  Country: None (occurrence: None)
  Receive Date: 20090623
  Receipt Date: 20080829
  Transmission Date: 20091009
  Serious: No
  Sender: FDA-Public Use
  Company Number: US-ASTRAZENECA-2008UW17990

PATIENT
  Sex: Male

DRUGS (2)
  1. PULMICORT FLEXHALER [Suspect]
     Dosage: TWICE DAILY
     Route: 055
     Dates: start: 20080822
  2. ALBUTEROL [Concomitant]

REACTIONS (1)
  - WHEEZING [None]
